FAERS Safety Report 14352649 (Version 1)
Quarter: 2018Q1

REPORT INFORMATION
  Report Type: Spontaneous
  Country: US (occurrence: US)
  Receive Date: 20180104
  Receipt Date: 20180104
  Transmission Date: 20180509
  Serious: No
  Sender: FDA-Public Use
  Company Number: US-ALLERGAN-1771661US

PATIENT
  Sex: Male

DRUGS (2)
  1. NAMZARIC [Suspect]
     Active Substance: DONEPEZIL HYDROCHLORIDE\MEMANTINE HYDROCHLORIDE
     Indication: MENTAL DISORDER
  2. NAMZARIC [Suspect]
     Active Substance: DONEPEZIL HYDROCHLORIDE\MEMANTINE HYDROCHLORIDE
     Indication: MEMORY IMPAIRMENT
     Dosage: UNK
     Route: 065
     Dates: start: 20171019

REACTIONS (2)
  - Hyperaesthesia [Unknown]
  - Pain in extremity [Unknown]
